FAERS Safety Report 21066687 (Version 3)
Quarter: 2022Q3

REPORT INFORMATION
  Report Type: Spontaneous
  Country: US (occurrence: US)
  Receive Date: 20220711
  Receipt Date: 20220818
  Transmission Date: 20221027
  Serious: No
  Sender: FDA-Public Use
  Company Number: US-JNJFOC-20220713063

PATIENT
  Age: 64 Year
  Sex: Male
  Weight: 129.84 kg

DRUGS (5)
  1. SPRAVATO [Suspect]
     Active Substance: ESKETAMINE
     Indication: Depression
     Dosage: FOR FIRST 7 TREATMENTS
     Route: 045
     Dates: start: 20210623
  2. SPRAVATO [Suspect]
     Active Substance: ESKETAMINE
     Dosage: AFTER 7 TREATMENTS
     Route: 045
  3. VENLAFAXINE [Concomitant]
     Active Substance: VENLAFAXINE HYDROCHLORIDE
     Indication: Depression
     Route: 065
     Dates: start: 20220519
  4. LAMOTRIGINE [Concomitant]
     Active Substance: LAMOTRIGINE
     Indication: Depression
     Route: 065
     Dates: start: 20220407
  5. MIRTAZAPINE [Concomitant]
     Active Substance: MIRTAZAPINE
     Indication: Depression
     Route: 065
     Dates: start: 20210623

REACTIONS (1)
  - Drug ineffective [Recovered/Resolved with Sequelae]
